FAERS Safety Report 21103426 (Version 5)
Quarter: 2022Q4

REPORT INFORMATION
  Report Type: Report from Study
  Country: US (occurrence: US)
  Receive Date: 20220720
  Receipt Date: 20221216
  Transmission Date: 20230112
  Serious: Yes (Other)
  Sender: FDA-Public Use
  Company Number: US-NOVARTISPH-NVSC2022US159298

PATIENT
  Sex: Male

DRUGS (3)
  1. COSENTYX [Suspect]
     Active Substance: SECUKINUMAB
     Indication: Psoriasis
     Dosage: 300 MG, QMO
     Route: 058
  2. COSENTYX [Suspect]
     Active Substance: SECUKINUMAB
     Dosage: 300 MG
     Route: 058
  3. COSENTYX [Suspect]
     Active Substance: SECUKINUMAB
     Dosage: 300 MG, OTHER (EVERY 4 WEEKS)
     Route: 058

REACTIONS (7)
  - Myasthenia gravis [Unknown]
  - Muscular weakness [Unknown]
  - Vision blurred [Unknown]
  - Eyelid ptosis [Unknown]
  - Wound [Unknown]
  - Animal scratch [Unknown]
  - Spondylitis [Unknown]
